FAERS Safety Report 7527705-8 (Version None)
Quarter: 2011Q2

REPORT INFORMATION
  Report Type: 
  Country: None (occurrence: None)
  Receive Date: 20110607
  Receipt Date: 20110524
  Transmission Date: 20111010
  Serious: Yes (Hospitalization, Other)
  Sender: FDA-Public Use
  Company Number: PHHY2011BR45483

PATIENT
  Sex: Female
  Weight: 55 kg

DRUGS (5)
  1. DIOVAN [Suspect]
     Dosage: 1 DF, TID
     Route: 048
  2. DIOVAN [Suspect]
     Indication: HYPERTENSION
     Dosage: 1 DF, Q12H
     Route: 048
     Dates: start: 20090101
  3. SIMVASTATIN [Concomitant]
     Indication: BLOOD CHOLESTEROL
     Dosage: 2 DF AT NIGHT
     Route: 048
  4. ASPIRIN [Concomitant]
     Indication: ANTICOAGULANT THERAPY
     Dosage: 2 DF, AFTER LUNCH
     Route: 048
  5. SUSTRATE [Concomitant]
     Indication: CARDIOVASCULAR INSUFFICIENCY
     Dosage: 1 DF, BID
     Route: 048

REACTIONS (8)
  - DIZZINESS [None]
  - BLOOD PRESSURE INCREASED [None]
  - THROMBOSIS [None]
  - MALAISE [None]
  - DYSPNOEA [None]
  - VARICOSE VEIN [None]
  - PAIN [None]
  - INCORRECT DOSE ADMINISTERED [None]
